FAERS Safety Report 7423113-9 (Version None)
Quarter: 2011Q2

REPORT INFORMATION
  Report Type: 
  Country: None (occurrence: None)
  Receive Date: 20110419
  Receipt Date: 20100607
  Transmission Date: 20111010
  Serious: No
  Sender: FDA-Public Use
  Company Number: US-TYCO HEALTHCARE/MALLINCKRODT-T201001405

PATIENT

DRUGS (4)
  1. METHYLIN ER [Suspect]
     Dosage: 10 MG, QD
     Dates: start: 20100605
  2. METHYLIN ER [Suspect]
     Indication: ATTENTION DEFICIT/HYPERACTIVITY DISORDER
     Dosage: 20 MG, QD
     Dates: start: 20100524, end: 20100604
  3. LEVOTHYROXINE SODIUM [Concomitant]
     Indication: HYPOTHYROIDISM
     Dosage: .88 UNK, QD
  4. MULTI-VIT [Concomitant]
     Indication: VITAMIN SUPPLEMENTATION
     Dosage: 1 TABLET DAILY

REACTIONS (2)
  - ANXIETY [None]
  - AGITATION [None]
